FAERS Safety Report 8295539-5 (Version None)
Quarter: 2012Q2

REPORT INFORMATION
  Report Type: 
  Country: None (occurrence: None)
  Receive Date: 20120418
  Receipt Date: 20120405
  Transmission Date: 20120825
  Serious: Yes (Other)
  Sender: FDA-Public Use
  Company Number: DE-ELI_LILLY_AND_COMPANY-DE201204002621

PATIENT
  Age: 70 Year
  Sex: Female
  Weight: 70 kg

DRUGS (16)
  1. LANITOP [Concomitant]
     Dosage: 0.1 MG, QD
  2. LANTUS [Concomitant]
     Dosage: 20 DF, QD
  3. SPIRONOLACTONE [Concomitant]
     Dosage: 50 MG, QD
  4. MARCUMAR [Concomitant]
     Dosage: 1.1 DF, QD
  5. CYMBALTA [Suspect]
     Indication: POLYNEUROPATHY
     Dosage: 30 MG, QD
     Route: 048
     Dates: start: 20110929, end: 20111006
  6. METFORMIN HCL [Concomitant]
     Dosage: UNK, BID
  7. TILIDIN COMP. [Concomitant]
     Dosage: 25 GTT, EACH EVENING
  8. GLIMEPIRID [Concomitant]
     Dosage: 4 MG, QD
  9. XIPAMID [Concomitant]
     Dosage: 40 MG, QD
  10. LUMIGAN [Concomitant]
     Dosage: 1 DF, QD
  11. DILTAHEXAL [Concomitant]
     Dosage: 120 MG, QD
  12. LEVODOPA BENSERAZIDE HYDROCHLO [Concomitant]
     Dosage: 1 DF, BID
  13. LYRICA [Concomitant]
     Dosage: 150 MG, BID
  14. ATACAND HCT [Concomitant]
     Dosage: UNK, QD
  15. RESTEX [Concomitant]
     Dosage: 1 DF, QD
  16. TILIDIN COMP. [Concomitant]
     Dosage: 20 GTT, EACH MORNING

REACTIONS (3)
  - HALLUCINATION, VISUAL [None]
  - MENTAL DISORDER [None]
  - CONFUSIONAL STATE [None]
